FAERS Safety Report 9862169 (Version 1)
Quarter: 2014Q1

REPORT INFORMATION
  Report Type: Spontaneous
  Country: BR (occurrence: BR)
  Receive Date: 20140203
  Receipt Date: 20140203
  Transmission Date: 20141002
  Serious: Yes (Other)
  Sender: FDA-Public Use
  Company Number: BR-ASTELLAS-2014US000883

PATIENT
  Age: 72 Year
  Sex: Female

DRUGS (1)
  1. AMBISOME [Suspect]
     Indication: VISCERAL LEISHMANIASIS
     Dosage: UNK
     Route: 065

REACTIONS (2)
  - Vestibular disorder [Unknown]
  - Back pain [Unknown]
